FAERS Safety Report 9288459 (Version 3)
Quarter: 2013Q2

REPORT INFORMATION
  Report Type: Spontaneous
  Country: JP (occurrence: JP)
  Receive Date: 20130514
  Receipt Date: 20130522
  Transmission Date: 20140414
  Serious: Yes (Other)
  Sender: FDA-Public Use
  Company Number: JP-PFIZER INC-2013145237

PATIENT
  Age: 41 Year
  Sex: Male

DRUGS (5)
  1. CISPLATIN [Suspect]
     Indication: NON-SMALL CELL LUNG CANCER
     Dosage: 63 MG, UNK
  2. GEMCITABINE [Concomitant]
     Indication: NON-SMALL CELL LUNG CANCER
     Dosage: 1590 MG, UNK
  3. BENIDIPINE [Concomitant]
     Dosage: 4 MG, 1X/DAY
  4. RABEPRAZOLE [Concomitant]
     Dosage: 10 MG, 1X/DAY
  5. CARBOCISTEINE [Concomitant]
     Dosage: 1500 MG, 1X/DAY

REACTIONS (2)
  - Acute myocardial infarction [Unknown]
  - Extremity necrosis [Unknown]
